FAERS Safety Report 6804149-5 (Version None)
Quarter: 2010Q2

REPORT INFORMATION
  Report Type: 
  Country: None (occurrence: None)
  Receive Date: 20100628
  Receipt Date: 20070329
  Transmission Date: 20101027
  Serious: No
  Sender: FDA-Public Use
  Company Number: US-PFIZER INC-2006109082

PATIENT
  Sex: Male
  Weight: 58.97 kg

DRUGS (2)
  1. SU-011,248 [Suspect]
     Indication: RENAL CANCER
     Dates: start: 20060712
  2. SU-011,248 [Suspect]

REACTIONS (4)
  - FOOD INTOLERANCE [None]
  - LACRIMATION INCREASED [None]
  - OCULAR HYPERAEMIA [None]
  - ORAL PAIN [None]
